FAERS Safety Report 18789608 (Version 1)
Quarter: 2021Q1

REPORT INFORMATION
  Report Type: Report from Study
  Country: US (occurrence: US)
  Receive Date: 20210126
  Receipt Date: 20210126
  Transmission Date: 20210419
  Serious: Yes (Other)
  Sender: FDA-Public Use
  Company Number: US-ASTRAZENECA-2021A009553

PATIENT
  Sex: Female

DRUGS (1)
  1. LYNPARZA [Suspect]
     Active Substance: OLAPARIB
     Indication: OVARIAN CANCER
     Route: 048

REACTIONS (4)
  - Mediastinum neoplasm [Recovering/Resolving]
  - Fibromyalgia [Unknown]
  - COVID-19 [Recovering/Resolving]
  - Carbohydrate antigen 125 increased [Recovering/Resolving]
